FAERS Safety Report 6248559-6 (Version None)
Quarter: 2009Q2

REPORT INFORMATION
  Report Type: 
  Country: None (occurrence: None)
  Receive Date: 20090624
  Receipt Date: 20090624
  Transmission Date: 20091009
  Serious: Yes (Life-Threatening)
  Sender: FDA-Public Use
  Company Number: None

PATIENT
  Age: 49 Year
  Sex: Female
  Weight: 59 kg

DRUGS (13)
  1. INSULIN ASPART [Suspect]
     Indication: TYPE 1 DIABETES MELLITUS
     Dosage: 3 UNITS SQ WITH BKFT
     Route: 058
     Dates: start: 20090403, end: 20090416
  2. INSULIN GLARGINE [Suspect]
     Indication: TYPE 1 DIABETES MELLITUS
     Dosage: 4 UNITS SQ QHS
     Route: 058
     Dates: start: 20090403, end: 20090416
  3. ASPIRIN [Concomitant]
  4. LIPITOR [Concomitant]
  5. CINACALCET [Concomitant]
  6. EPOGEN [Concomitant]
  7. GABAPENTIN [Concomitant]
  8. LACTOBACILLUS [Concomitant]
  9. LANSOPRAZOLE [Concomitant]
  10. METRONIDAZOLE [Concomitant]
  11. CEFEPIME [Concomitant]
  12. PHENYTOIN [Concomitant]
  13. VANCOMYCIN HCL [Concomitant]

REACTIONS (3)
  - BLOOD GLUCOSE DECREASED [None]
  - BLOOD GLUCOSE INCREASED [None]
  - DEPRESSED LEVEL OF CONSCIOUSNESS [None]
